APPROVED DRUG PRODUCT: DISOPHROL
Active Ingredient: DEXBROMPHENIRAMINE MALEATE; PSEUDOEPHEDRINE SULFATE
Strength: 2MG;60MG
Dosage Form/Route: TABLET;ORAL
Application: N012394 | Product #002
Applicant: SCHERING CORP SUB SCHERING PLOUGH CORP
Approved: Approved Prior to Jan 1, 1982 | RLD: No | RS: No | Type: DISCN